FAERS Safety Report 8816792 (Version 1)
Quarter: 2012Q4

REPORT INFORMATION
  Report Type: Spontaneous
  Country: TR (occurrence: None)
  Receive Date: 20121001
  Receipt Date: 20121001
  Transmission Date: 20130627
  Serious: Yes (Other)
  Sender: FDA-Public Use
  Company Number: 2012P1059016

PATIENT
  Age: 63 Year
  Sex: Male

DRUGS (3)
  1. AMLODIPINE [Suspect]
     Indication: HYPERTENSION
  2. ACETYLSALICYLIC ACID [Concomitant]
  3. RAMIPRIL [Concomitant]

REACTIONS (4)
  - Lacunar infarction [None]
  - Delirium [None]
  - Agitation [None]
  - Insomnia [None]
